FAERS Safety Report 7344767-1 (Version None)
Quarter: 2011Q1

REPORT INFORMATION
  Report Type: 
  Country: None (occurrence: None)
  Receive Date: 20110310
  Receipt Date: 20110212
  Transmission Date: 20110831
  Serious: No
  Sender: FDA-Public Use
  Company Number: US-B.I. PHARMACEUTICALS,INC./RIDGEFIELD-2011-BP-05585BP

PATIENT
  Sex: Male

DRUGS (7)
  1. PRADAXA [Suspect]
     Indication: ATRIAL FIBRILLATION
     Dosage: 300 MG
     Route: 048
     Dates: start: 20110101
  2. VERAPAMIL [Concomitant]
     Indication: ATRIAL FIBRILLATION
     Dosage: 80 MG
     Route: 048
  3. AMBIEN [Concomitant]
     Indication: INSOMNIA
     Dosage: 10 MG
     Route: 048
  4. MULTAQ [Concomitant]
     Indication: ARRHYTHMIA
     Dosage: 800 MG
     Route: 048
  5. LAMICTAL [Concomitant]
     Indication: DEPRESSION
     Dosage: 200 MG
     Route: 048
  6. LEXAPRO [Concomitant]
     Indication: DEPRESSION
     Dosage: 20 MG
     Route: 048
  7. ATIVAN [Concomitant]
     Indication: ANXIETY
     Dosage: 0.5 MG
     Route: 048

REACTIONS (3)
  - DIARRHOEA [None]
  - FLATULENCE [None]
  - MUSCLE SPASMS [None]
